FAERS Safety Report 5765782-5 (Version None)
Quarter: 2008Q2

REPORT INFORMATION
  Report Type: 
  Country: None (occurrence: None)
  Receive Date: 20080605
  Receipt Date: 20080318
  Transmission Date: 20081010
  Serious: Yes (Other)
  Sender: FDA-Public Use
  Company Number: SPV1-2008-00627

PATIENT
  Age: 10 Year
  Sex: Female
  Weight: 27.2 kg

DRUGS (4)
  1. DAYTRANA [Suspect]
     Indication: ATTENTION DEFICIT/HYPERACTIVITY DISORDER
     Dosage: 30 MG, 1X/DAY:QD, TRANSDERMAL ; 20 MG, 1X/DAY:QD, TRANSDERMAL
     Route: 062
     Dates: start: 20080101, end: 20080201
  2. DAYTRANA [Suspect]
     Indication: ATTENTION DEFICIT/HYPERACTIVITY DISORDER
     Dosage: 30 MG, 1X/DAY:QD, TRANSDERMAL ; 20 MG, 1X/DAY:QD, TRANSDERMAL
     Route: 062
     Dates: start: 20080201
  3. SEROQUEL [Suspect]
     Indication: BIPOLAR DISORDER
     Dosage: 25 MG, 2X/DAY:BID, ORAL ; 25 MG, 1X/DAY:QD IN PM, ORAL
     Route: 048
     Dates: start: 20071201, end: 20080201
  4. FOCALIN [Suspect]
     Indication: ATTENTION DEFICIT/HYPERACTIVITY DISORDER
     Dosage: 5 MG, 1X/DAY:QD, ORAL
     Route: 048
     Dates: start: 20080101

REACTIONS (7)
  - APPLICATION SITE ERYTHEMA [None]
  - APPLICATION SITE IRRITATION [None]
  - APPLICATION SITE PRURITUS [None]
  - CONVULSION [None]
  - LETHARGY [None]
  - MOOD ALTERED [None]
  - PHARMACEUTICAL PRODUCT COMPLAINT [None]
